FAERS Safety Report 8391731-X (Version None)
Quarter: 2012Q2

REPORT INFORMATION
  Report Type: 
  Country: None (occurrence: None)
  Receive Date: 20120529
  Receipt Date: 20120518
  Transmission Date: 20120825
  Serious: Yes (Other)
  Sender: FDA-Public Use
  Company Number: US-JNJFOC-20100509365

PATIENT
  Age: 82 Year
  Sex: Female

DRUGS (1)
  1. REMICADE [Suspect]
     Indication: ILL-DEFINED DISORDER
     Route: 042

REACTIONS (2)
  - OPPORTUNISTIC INFECTION [None]
  - PNEUMONIA [None]
